FAERS Safety Report 6835535-5 (Version None)
Quarter: 2010Q3

REPORT INFORMATION
  Report Type: 
  Country: None (occurrence: None)
  Receive Date: 20100713
  Receipt Date: 20100705
  Transmission Date: 20110219
  Serious: Yes (Death, Hospitalization)
  Sender: FDA-Public Use
  Company Number: PHHY2010CH43773

PATIENT
  Age: 89 Year
  Sex: Female

DRUGS (10)
  1. ZOMETA [Suspect]
     Indication: BREAST CANCER METASTATIC
     Dosage: 4 MG/ MONTH
     Route: 042
     Dates: start: 20091208
  2. NOLVADEX [Suspect]
     Indication: BREAST CANCER
     Dosage: 20 MG / DAY
     Dates: start: 20090123
  3. MARCUMAR [Concomitant]
     Dosage: PRN
     Dates: start: 20100123
  4. DAFALGAN [Concomitant]
     Dosage: PRN
     Dates: start: 20091201
  5. HEPATODORON [Concomitant]
     Dosage: 3 DOSAGE FORMS/DAY
     Dates: start: 20091201
  6. ZOLDORM [Concomitant]
     Dosage: 5 MG/ DAY
     Dates: start: 20091201
  7. AROMASIN [Concomitant]
     Dosage: 25 MG DAILY
     Dates: start: 20091201
  8. ISCADOR [Concomitant]
     Dosage: 2 DOSAGE FORMS/DAY
     Dates: start: 20091201
  9. ASSALIX [Concomitant]
     Dosage: 1 DOSAGE FORM/DAY
     Dates: start: 20091201
  10. MINALGIN [Concomitant]
     Dosage: PRN
     Dates: start: 20091201

REACTIONS (11)
  - BILE DUCT CANCER [None]
  - BILE DUCT STENT INSERTION [None]
  - BLOOD CREATININE INCREASED [None]
  - CHOLESTASIS [None]
  - DRUG ADMINISTRATION ERROR [None]
  - FATIGUE [None]
  - GENERAL PHYSICAL HEALTH DETERIORATION [None]
  - HEPATIC FUNCTION ABNORMAL [None]
  - MALIGNANT NEOPLASM PROGRESSION [None]
  - NAUSEA [None]
  - RENAL FAILURE CHRONIC [None]
